FAERS Safety Report 14660103 (Version 1)
Quarter: 2018Q1

REPORT INFORMATION
  Report Type: Spontaneous
  Country: US (occurrence: US)
  Receive Date: 20180320
  Receipt Date: 20180320
  Transmission Date: 20180509
  Serious: Yes (Hospitalization, Other)
  Sender: FDA-Public Use
  Company Number: US-ELI_LILLY_AND_COMPANY-US201803008334

PATIENT
  Age: 71 Year
  Sex: Male

DRUGS (2)
  1. ERBITUX [Suspect]
     Active Substance: CETUXIMAB
     Indication: TONSIL CANCER METASTATIC
     Dosage: UNK, UNKNOWN
     Route: 065
  2. CISPLATIN. [Suspect]
     Active Substance: CISPLATIN
     Indication: TONSIL CANCER METASTATIC
     Dosage: UNK UNK, UNKNOWN
     Route: 065

REACTIONS (7)
  - Abdominal distension [Unknown]
  - Orthostatic hypotension [Unknown]
  - Parotitis [Unknown]
  - Necrotising oesophagitis [Recovered/Resolved]
  - Multiple organ dysfunction syndrome [Unknown]
  - Sepsis [Unknown]
  - Pneumonia [Recovered/Resolved]
